FAERS Safety Report 13131767 (Version 1)
Quarter: 2017Q1

REPORT INFORMATION
  Report Type: Spontaneous
  Country: US (occurrence: US)
  Receive Date: 20170119
  Receipt Date: 20170119
  Transmission Date: 20170428
  Serious: Yes (Hospitalization, Other)
  Sender: FDA-Public Use
  Company Number: US-BAUSCH-BL-2017-001363

PATIENT
  Age: 81 Year
  Sex: Male

DRUGS (1)
  1. XIFAXAN [Suspect]
     Active Substance: RIFAXIMIN
     Indication: PRODUCT USED FOR UNKNOWN INDICATION
     Route: 065

REACTIONS (6)
  - Intestinal obstruction [Unknown]
  - Surgery [Unknown]
  - Multiple fractures [Unknown]
  - Impaired healing [Unknown]
  - Thrombosis [Unknown]
  - Fall [Unknown]

NARRATIVE: CASE EVENT DATE: 201607
